FAERS Safety Report 5194160-5 (Version None)
Quarter: 2006Q4

REPORT INFORMATION
  Report Type: 
  Country: None (occurrence: None)
  Receive Date: 20061228
  Receipt Date: 20061218
  Transmission Date: 20070319
  Serious: Yes (Other)
  Sender: FDA-Public Use
  Company Number: GB-SANOFI-SYNTHELABO-A01200611058

PATIENT
  Sex: Female

DRUGS (2)
  1. STATINS [Concomitant]
     Indication: DRUG USE FOR UNKNOWN INDICATION
     Dosage: UNK
     Route: 065
  2. PLAVIX [Suspect]
     Indication: STENT PLACEMENT
     Route: 048
     Dates: start: 20061001

REACTIONS (6)
  - CHOLELITHIASIS [None]
  - FEELING ABNORMAL [None]
  - HEPATIC FAILURE [None]
  - JAUNDICE [None]
  - MALAISE [None]
  - WEIGHT DECREASED [None]
